FAERS Safety Report 6432799-7 (Version None)
Quarter: 2009Q4

REPORT INFORMATION
  Report Type: 
  Country: None (occurrence: None)
  Receive Date: 20091109
  Receipt Date: 20091103
  Transmission Date: 20100525
  Serious: Yes (Hospitalization, Other)
  Sender: FDA-Public Use
  Company Number: A0814743A

PATIENT
  Age: 9 Year
  Sex: Female

DRUGS (4)
  1. LAMICTAL [Suspect]
     Indication: DRUG USE FOR UNKNOWN INDICATION
     Dosage: 25MG PER DAY
     Route: 048
     Dates: start: 20091001, end: 20091001
  2. STRATTERA [Concomitant]
  3. ABILIFY [Concomitant]
  4. TENEX [Concomitant]

REACTIONS (6)
  - CHAPPED LIPS [None]
  - EMOTIONAL DISTRESS [None]
  - LIP SWELLING [None]
  - PIGMENTATION DISORDER [None]
  - RASH [None]
  - SKIN EXFOLIATION [None]
